FAERS Safety Report 13759460 (Version 1)
Quarter: 2017Q3

REPORT INFORMATION
  Report Type: Spontaneous
  Country: NL (occurrence: NL)
  Receive Date: 20170717
  Receipt Date: 20170717
  Transmission Date: 20171127
  Serious: Yes (Life-Threatening, Hospitalization)
  Sender: FDA-Public Use
  Company Number: NL-BAUSCH-BL-2017-021015

PATIENT
  Age: 15 Year
  Sex: Female

DRUGS (1)
  1. TILDIEM XR [Suspect]
     Active Substance: DILTIAZEM HYDROCHLORIDE
     Indication: INTENTIONAL OVERDOSE
     Dosage: ONCE
     Route: 048
     Dates: start: 19991104, end: 19991104

REACTIONS (14)
  - Shock [None]
  - Suicide attempt [None]
  - Leukocytosis [None]
  - Pulmonary oedema [None]
  - Dizziness [None]
  - Acute respiratory distress syndrome [None]
  - Electrocardiogram P wave abnormal [None]
  - Toxicity to various agents [Recovered/Resolved]
  - Sinus arrest [None]
  - Intentional overdose [None]
  - Metabolic acidosis [None]
  - Oliguria [None]
  - Nausea [None]
  - Supraventricular tachycardia [None]

NARRATIVE: CASE EVENT DATE: 19991105
